FAERS Safety Report 7423010-9 (Version None)
Quarter: 2011Q2

REPORT INFORMATION
  Report Type: 
  Country: None (occurrence: None)
  Receive Date: 20110411
  Receipt Date: 20110325
  Transmission Date: 20111010
  Serious: Yes (Hospitalization, Other)
  Sender: FDA-Public Use
  Company Number: 20110226

PATIENT
  Sex: Female

DRUGS (1)
  1. VENOFER [Suspect]
     Indication: IRON DEFICIENCY ANAEMIA
     Dosage: 1000 MG OVER 6 HOURS
     Route: 042
     Dates: start: 20110322, end: 20110322

REACTIONS (4)
  - HEPATIC ISCHAEMIA [None]
  - OVERDOSE [None]
  - ANAPHYLACTIC REACTION [None]
  - SEPTIC SHOCK [None]
